FAERS Safety Report 8608683-7 (Version None)
Quarter: 2012Q3

REPORT INFORMATION
  Report Type: 
  Country: None (occurrence: None)
  Receive Date: 20120821
  Receipt Date: 20120813
  Transmission Date: 20120928
  Serious: Yes (Death)
  Sender: FDA-Public Use
  Company Number: NO-CELGENEUS-122-21660-12081522

PATIENT
  Sex: Female

DRUGS (4)
  1. ZANTAC [Concomitant]
     Indication: PREMEDICATION
     Route: 065
     Dates: start: 20120627, end: 20120627
  2. DEXAMETHASONE [Concomitant]
     Indication: PREMEDICATION
     Route: 065
     Dates: start: 20120627, end: 20120627
  3. ABRAXANE [Suspect]
     Indication: BREAST CANCER
     Route: 050
     Dates: start: 20120627, end: 20120627
  4. DEXCHLORPHENIRAMINE MALEATE [Concomitant]
     Indication: PREMEDICATION
     Route: 065
     Dates: start: 20120627, end: 20120627

REACTIONS (2)
  - ANAPHYLACTIC SHOCK [None]
  - BRONCHOSPASM [None]
